FAERS Safety Report 6607031-1 (Version None)
Quarter: 2010Q1

REPORT INFORMATION
  Report Type: 
  Country: None (occurrence: None)
  Receive Date: 20100226
  Receipt Date: 20100219
  Transmission Date: 20100710
  Serious: Yes (Death)
  Sender: FDA-Public Use
  Company Number: US-AMGEN-QUU391575

PATIENT
  Sex: Male
  Weight: 72.6 kg

DRUGS (23)
  1. NPLATE [Suspect]
     Indication: IDIOPATHIC THROMBOCYTOPENIC PURPURA
     Route: 058
     Dates: start: 20081009, end: 20081124
  2. ACETAMINOPHEN AND CODEINE PHOSPHATE [Concomitant]
     Dates: start: 20070928
  3. COMPAZINE [Concomitant]
     Dates: start: 20070330
  4. FERRLECIT [Concomitant]
     Dates: start: 20070511
  5. LOMOTIL [Concomitant]
     Dates: start: 20070529
  6. ROXANOL [Concomitant]
     Route: 048
     Dates: start: 20081121
  7. ZOFRAN [Concomitant]
     Dates: start: 20070601
  8. ATENOLOL [Concomitant]
     Route: 048
     Dates: start: 20080418
  9. CIPRO [Concomitant]
     Route: 001
     Dates: start: 20080729
  10. COLACE [Concomitant]
     Route: 048
  11. LEVOTHROID [Concomitant]
     Route: 048
     Dates: start: 20070706
  12. MIRALAX [Concomitant]
     Route: 048
  13. MOTRIN [Concomitant]
     Route: 048
  14. MS CONTIN [Concomitant]
     Route: 048
  15. ALOXI [Concomitant]
     Route: 042
     Dates: start: 20070330, end: 20081124
  16. CETUXIMAB [Concomitant]
     Route: 042
     Dates: start: 20080430, end: 20081124
  17. DEXAMETHASONE [Concomitant]
     Route: 042
     Dates: start: 20070330, end: 20081124
  18. DIPHENHYDRAMINE HYDROCHLORIDE [Concomitant]
     Dates: start: 20080430, end: 20081124
  19. FLUOROURACIL [Concomitant]
     Route: 042
     Dates: start: 20080312, end: 20081124
  20. HEPARIN [Concomitant]
     Route: 042
     Dates: start: 20070601, end: 20081124
  21. LEUCOVORIN CALCIUM [Concomitant]
     Route: 042
     Dates: start: 20080312, end: 20081124
  22. OXALIPLATIN [Concomitant]
     Route: 042
     Dates: start: 20070330, end: 20081124
  23. REMERON [Concomitant]
     Route: 048
     Dates: start: 20070620

REACTIONS (2)
  - COLON CANCER METASTATIC [None]
  - MALIGNANT NEOPLASM PROGRESSION [None]
